FAERS Safety Report 7466126-3 (Version None)
Quarter: 2011Q2

REPORT INFORMATION
  Report Type: 
  Country: None (occurrence: None)
  Receive Date: 20110509
  Receipt Date: 20100623
  Transmission Date: 20111010
  Serious: No
  Sender: FDA-Public Use
  Company Number: US-ALEXION-A201000732

PATIENT
  Sex: Male

DRUGS (12)
  1. PLAVIX [Concomitant]
     Dosage: 75 MG, UNK
  2. ZOLOFT [Concomitant]
     Dosage: UNK
  3. AMBIEN [Concomitant]
     Dosage: UNK
  4. PERCOCET [Concomitant]
     Dosage: UNK
  5. IMDUR [Concomitant]
     Dosage: 30 MG, UNK
  6. LIPITOR [Concomitant]
     Dosage: 10 MG, UNK
  7. ANTITHYMOCYTE IMMUNOGLOBULIN [Suspect]
     Dosage: UNK
     Dates: start: 20100101
  8. FOLIC ACID [Concomitant]
     Dosage: 800 UG, UNK
  9. COREG [Concomitant]
     Dosage: 10 MG, QD
     Dates: start: 20100504
  10. SOLIRIS [Suspect]
     Indication: PAROXYSMAL NOCTURNAL HAEMOGLOBINURIA
     Dosage: 900 MG, Q2W
     Route: 042
  11. METOPROLOL TARTRATE [Concomitant]
     Dosage: 25 MG, UNK
  12. TERAZOSIN HCL [Concomitant]
     Dosage: 5 MG, UNK

REACTIONS (5)
  - ASTHENIA [None]
  - DYSPNOEA [None]
  - ANAEMIA [None]
  - PAIN IN EXTREMITY [None]
  - BACK PAIN [None]
